FAERS Safety Report 10890311 (Version 4)
Quarter: 2016Q1

REPORT INFORMATION
  Report Type: Spontaneous
  Country: US (occurrence: US)
  Receive Date: 20150305
  Receipt Date: 20160119
  Transmission Date: 20160525
  Serious: No
  Sender: FDA-Public Use
  Company Number: US-PFIZER INC-2015075394

PATIENT
  Age: 55 Year
  Sex: Female
  Weight: 63 kg

DRUGS (11)
  1. ASPIRIN. [Concomitant]
     Active Substance: ASPIRIN
     Dosage: 1 DF, DAILY (ONE 325MG TABLET DAILY)
     Route: 048
  2. CALCIUM CARBONATE-VITAMIN D [Concomitant]
     Active Substance: CALCIUM CARBONATE\VITAMIN D
     Dosage: 1 DF, DAILY
     Route: 048
  3. VALIUM [Concomitant]
     Active Substance: DIAZEPAM
     Dosage: 1 DF, AS NEEDED (ONE 5MG TABLET EVERY SIX HOURS)
     Route: 048
  4. INDERAL LA [Suspect]
     Active Substance: PROPRANOLOL HYDROCHLORIDE
     Indication: MIGRAINE
  5. RELPAX [Concomitant]
     Active Substance: ELETRIPTAN HYDROBROMIDE
     Dosage: 1 DF, AS NEEDED (ONE 40MG TABLET, REPEAT IN TWO HOURS IF NECESSARY)
     Route: 048
  6. LEXAPRO [Concomitant]
     Active Substance: ESCITALOPRAM OXALATE
     Dosage: 1 DF, 1X/DAY (ONE 10MG TABLET ONCE DAILY)
     Route: 048
  7. INDERAL LA [Suspect]
     Active Substance: PROPRANOLOL HYDROCHLORIDE
     Indication: HEADACHE
     Dosage: 80 MG, DAILY
     Route: 048
     Dates: start: 2015, end: 201505
  8. PAMELOR [Concomitant]
     Active Substance: NORTRIPTYLINE HYDROCHLORIDE
     Dosage: 1 DF, UNK (ONE 25MG CAPSULE AT BEDTIME)
     Route: 048
  9. MAGNESIUM [Concomitant]
     Active Substance: MAGNESIUM
     Dosage: UNK
     Route: 048
  10. LEXAPRO [Concomitant]
     Active Substance: ESCITALOPRAM OXALATE
     Dosage: 1 DF, 1X/DAY (ONE 20MG TABLET ONCE DAILY)
  11. MULTIVITAMINS [Concomitant]
     Active Substance: VITAMINS
     Dosage: 1 DF, DAILY (ONE TABLET)
     Route: 048

REACTIONS (10)
  - Fatigue [Unknown]
  - Memory impairment [Unknown]
  - Sleep apnoea syndrome [Unknown]
  - Somnolence [Unknown]
  - Snoring [Unknown]
  - Poor quality sleep [Unknown]
  - Disturbance in attention [Unknown]
  - Irritability [Unknown]
  - Drug effect incomplete [Unknown]
  - Insomnia [Unknown]

NARRATIVE: CASE EVENT DATE: 2015
